FAERS Safety Report 4938265-X (Version None)
Quarter: 2006Q1

REPORT INFORMATION
  Report Type: 
  Country: None (occurrence: None)
  Receive Date: 20060309
  Receipt Date: 20060227
  Transmission Date: 20060701
  Serious: Yes (Hospitalization)
  Sender: FDA-Public Use
  Company Number: US-MERCK-0603USA00017

PATIENT
  Age: 53 Year
  Sex: Female
  Weight: 55 kg

DRUGS (9)
  1. VIOXX [Suspect]
     Indication: MIGRAINE
     Route: 048
     Dates: start: 20010119, end: 20040701
  2. VIOXX [Suspect]
     Route: 048
     Dates: start: 20010119, end: 20040701
  3. VIOXX [Suspect]
     Indication: OSTEOARTHRITIS
     Route: 048
     Dates: start: 20010119, end: 20040701
  4. VIOXX [Suspect]
     Route: 048
     Dates: start: 20010119, end: 20040701
  5. ALLEGRA [Concomitant]
     Route: 065
  6. CLONAZEPAM [Concomitant]
     Route: 065
  7. MAXALT [Concomitant]
     Indication: MIGRAINE
     Route: 048
  8. OXYCODONE [Concomitant]
     Route: 065
     Dates: start: 20030101, end: 20030101
  9. VALIUM [Concomitant]
     Route: 065
     Dates: start: 19990101

REACTIONS (3)
  - DEEP VEIN THROMBOSIS [None]
  - LOWER LIMB FRACTURE [None]
  - PULMONARY EMBOLISM [None]
